FAERS Safety Report 14000642 (Version 1)
Quarter: 2017Q3

REPORT INFORMATION
  Report Type: Spontaneous
  Country: US (occurrence: None)
  Receive Date: 20170922
  Receipt Date: 20170922
  Transmission Date: 20171128
  Serious: Yes (Hospitalization)
  Sender: FDA-Public Use
  Company Number: None

PATIENT
  Age: 56 Year
  Sex: Female
  Weight: 88.1 kg

DRUGS (8)
  1. PRTONIX [Concomitant]
  2. GENERLAC [Concomitant]
     Active Substance: LACTULOSE
  3. RIBAVIRIN 200MG [Suspect]
     Active Substance: RIBAVIRIN
     Route: 048
  4. ZOFRAN [Concomitant]
     Active Substance: ONDANSETRON HYDROCHLORIDE
  5. INDERAL [Concomitant]
     Active Substance: PROPRANOLOL HYDROCHLORIDE
  6. FERROUS SULFATE. [Concomitant]
     Active Substance: FERROUS SULFATE
  7. EPCLUSA [Suspect]
     Active Substance: SOFOSBUVIR\VELPATASVIR
     Indication: HEPATITIS C
     Dosage: 400-100MG QD ORAL
     Route: 048
     Dates: start: 20170207, end: 20170422
  8. LASIX [Concomitant]
     Active Substance: FUROSEMIDE

REACTIONS (8)
  - Substance abuse [None]
  - Body temperature increased [None]
  - Feeling abnormal [None]
  - Upper gastrointestinal haemorrhage [None]
  - Atrial fibrillation [None]
  - Bleeding varicose vein [None]
  - Nausea [None]
  - Pancreatitis [None]

NARRATIVE: CASE EVENT DATE: 20170314
